FAERS Safety Report 5178233-9 (Version None)
Quarter: 2006Q4

REPORT INFORMATION
  Report Type: 
  Country: None (occurrence: None)
  Receive Date: 20061208
  Receipt Date: 20061129
  Transmission Date: 20070319
  Serious: Yes (Hospitalization)
  Sender: FDA-Public Use
  Company Number: GXKR2006PL07747

PATIENT
  Age: 55 Year
  Sex: Female
  Weight: 65 kg

DRUGS (2)
  1. AMOKSIKLAV (NGX)(AMOXICILLIN, CLAVULANATE) UNKNOWN [Suspect]
     Dosage: 1500 MG, ORAL
     Route: 048
     Dates: start: 20061020, end: 20061028
  2. OMEPRAZOLE [Concomitant]

REACTIONS (2)
  - DYSPNOEA [None]
  - URTICARIA [None]
